FAERS Safety Report 23718029 (Version 1)
Quarter: 2024Q2

REPORT INFORMATION
  Report Type: Spontaneous
  Country: TH (occurrence: TH)
  Receive Date: 20240408
  Receipt Date: 20240408
  Transmission Date: 20240716
  Serious: Yes (Other)
  Sender: FDA-Public Use
  Company Number: TH-GUERBETG-TH-20240007

PATIENT
  Age: 64 Year
  Sex: Male

DRUGS (3)
  1. LIPIODOL [Suspect]
     Active Substance: ETHIODIZED OIL
     Indication: Transcatheter arterial chemoembolisation
     Dosage: 11 MONTHS PRIOR TO THIS ADMISSION (PTA) OF THIRD TACE VIA ?POSTERIOR BRANCHES OF IPA, AND ANTEROSUPE
     Route: 013
  2. MITOMYCIN C [Suspect]
     Active Substance: MITOMYCIN
     Indication: Transcatheter arterial chemoembolisation
     Dosage: 11 MONTHS PRIOR TO THIS ADMISSION (PTA) OF THIRD TACE VIA ?POSTERIOR BRANCHES OF IPA, AND ANTEROSUPE
     Route: 013
  3. FLUOROURACIL [Suspect]
     Active Substance: FLUOROURACIL
     Indication: Transcatheter arterial chemoembolisation
     Dosage: 11 MONTHS PRIOR TO THIS ADMISSION (PTA) OF THIRD TACE VIA ?POSTERIOR BRANCHES OF IPA, AND ANTEROSUPE
     Route: 013

REACTIONS (2)
  - Diaphragmatic hernia [Recovered/Resolved]
  - Product use issue [Recovered/Resolved]
